FAERS Safety Report 14073138 (Version 1)
Quarter: 2017Q4

REPORT INFORMATION
  Report Type: Spontaneous
  Country: US (occurrence: US)
  Receive Date: 20171010
  Receipt Date: 20171010
  Transmission Date: 20180321
  Serious: No
  Sender: FDA-Public Use
  Company Number: US-JNJFOC-20170716064

PATIENT
  Age: 75 Year
  Sex: Male
  Weight: 87.54 kg

DRUGS (1)
  1. TYLENOL EXTRA STRENGTH [Suspect]
     Active Substance: ACETAMINOPHEN
     Indication: PROCEDURAL PAIN
     Dosage: 1 CAPLET IN THE MORNING, 1 CAPLET IN THE AFTERNOON AND 2 CAPLETS AT BEDTIME,
     Route: 048
     Dates: start: 20170707

REACTIONS (1)
  - Drug ineffective for unapproved indication [Unknown]
